FAERS Safety Report 15223658 (Version 1)
Quarter: 2018Q3

REPORT INFORMATION
  Report Type: Spontaneous
  Country: US (occurrence: US)
  Receive Date: 20180705
  Receipt Date: 20180705
  Transmission Date: 20181010
  Serious: Yes (Hospitalization)
  Sender: FDA-Public Use
  Company Number: None

PATIENT
  Age: 36 Year
  Sex: Male

DRUGS (4)
  1. HUMIRA [Suspect]
     Active Substance: ADALIMUMAB
     Indication: PSORIATIC ARTHROPATHY
     Route: 058
     Dates: start: 20180410
  2. ALEVE [Concomitant]
     Active Substance: NAPROXEN SODIUM
  3. MOMETASONE [Concomitant]
     Active Substance: MOMETASONE
  4. TRAMADOL. [Concomitant]
     Active Substance: TRAMADOL

REACTIONS (2)
  - Condition aggravated [None]
  - Pain [None]

NARRATIVE: CASE EVENT DATE: 201806
